FAERS Safety Report 14905977 (Version 3)
Quarter: 2018Q4

REPORT INFORMATION
  Report Type: Report from Study
  Country: US (occurrence: US)
  Receive Date: 20180517
  Receipt Date: 20181217
  Transmission Date: 20190204
  Serious: No
  Sender: FDA-Public Use
  Company Number: US-SA-2018SA056472

PATIENT
  Age: 84 Year
  Sex: Female

DRUGS (1)
  1. INSULIN GLARGINE [Suspect]
     Active Substance: INSULIN GLARGINE
     Indication: DIABETES MELLITUS
     Dosage: 30 U, QD
     Route: 058

REACTIONS (9)
  - Nasopharyngitis [Unknown]
  - Hypoacusis [Unknown]
  - Peripheral swelling [Unknown]
  - Depression [Unknown]
  - Device occlusion [Unknown]
  - Cough [Unknown]
  - Malaise [Unknown]
  - Memory impairment [Unknown]
  - Lymphoedema [Unknown]
